FAERS Safety Report 11727140 (Version 3)
Quarter: 2016Q1

REPORT INFORMATION
  Report Type: Spontaneous
  Country: AT (occurrence: AT)
  Receive Date: 20151112
  Receipt Date: 20160205
  Transmission Date: 20160525
  Serious: Yes (Death, Other)
  Sender: FDA-Public Use
  Company Number: AT-BEH-2015055687

PATIENT
  Age: 71 Year
  Sex: Male

DRUGS (4)
  1. INTRAVENOUS IMMUNOGLOBULIN [Suspect]
     Active Substance: HUMAN IMMUNOGLOBULIN G
     Indication: DEMYELINATION
  2. CORTICOSTEROIDS [Suspect]
     Active Substance: CORTICOSTEROID NOS
  3. INTRAVENOUS IMMUNOGLOBULIN [Suspect]
     Active Substance: HUMAN IMMUNOGLOBULIN G
     Indication: ANTIBODY TEST POSITIVE
  4. INTRAVENOUS IMMUNOGLOBULIN [Suspect]
     Active Substance: HUMAN IMMUNOGLOBULIN G
     Indication: ANTI-AQUAPORIN-4 ANTIBODY POSITIVE

REACTIONS (1)
  - Drug ineffective for unapproved indication [Fatal]
